FAERS Safety Report 21212310 (Version 1)
Quarter: 2022Q3

REPORT INFORMATION
  Report Type: Spontaneous
  Country: US (occurrence: US)
  Receive Date: 20220815
  Receipt Date: 20220815
  Transmission Date: 20221027
  Serious: Yes (Death, Hospitalization)
  Sender: FDA-Public Use
  Company Number: US-BAYER-2022A109724

PATIENT
  Age: 77 Year
  Sex: Male

DRUGS (1)
  1. NEXAVAR [Suspect]
     Active Substance: SORAFENIB
     Indication: Hepatic cancer
     Dosage: DAILY DOSE 200 MG
     Route: 048
     Dates: start: 20220618, end: 20220629

REACTIONS (4)
  - Death [Fatal]
  - Hepatic failure [None]
  - Hepatic cancer [None]
  - Off label use [None]

NARRATIVE: CASE EVENT DATE: 20220618
